FAERS Safety Report 10178238 (Version 1)
Quarter: 2014Q2

REPORT INFORMATION
  Report Type: Report from Study
  Country: CA (occurrence: CA)
  Receive Date: 20140519
  Receipt Date: 20140519
  Transmission Date: 20141212
  Serious: Yes (Hospitalization, Other)
  Sender: FDA-Public Use
  Company Number: CA-BRISTOL-MYERS SQUIBB COMPANY-20728168

PATIENT
  Age: 69 Year
  Sex: Male

DRUGS (7)
  1. ORENCIA [Suspect]
     Indication: RHEUMATOID ARTHRITIS
     Dosage: 1DF:750 UNIT NOS
     Dates: start: 20130227
  2. PLAQUENIL [Concomitant]
  3. PREDNISONE [Concomitant]
  4. SULFASALAZINE [Concomitant]
  5. ARAVA [Concomitant]
  6. LYRICA [Concomitant]
  7. METFORMIN [Concomitant]

REACTIONS (4)
  - Headache [Unknown]
  - Thrombosis [Unknown]
  - Vomiting [Unknown]
  - Hypertension [Unknown]
